FAERS Safety Report 21199628 (Version 1)
Quarter: 2022Q3

REPORT INFORMATION
  Report Type: Spontaneous
  Country: US (occurrence: US)
  Receive Date: 20220811
  Receipt Date: 20220811
  Transmission Date: 20221026
  Serious: No
  Sender: FDA-Public Use
  Company Number: US-NOVARTISTESTPH-NVSC2022US181048

PATIENT
  Sex: Male

DRUGS (1)
  1. ZOLGENSMA [Suspect]
     Active Substance: ONASEMNOGENE ABEPARVOVEC-XIOI
     Indication: Spinal muscular atrophy
     Dosage: 1.1 ? 1014 VECTOR GENOMES (VG) PER KG OF BODY WEIGHT, ONCE/SINGLE
     Route: 042
     Dates: start: 20220405

REACTIONS (2)
  - Torticollis [Unknown]
  - Insomnia [Unknown]
